FAERS Safety Report 7511299-7 (Version None)
Quarter: 2011Q2

REPORT INFORMATION
  Report Type: 
  Country: None (occurrence: None)
  Receive Date: 20110519
  Receipt Date: 20110504
  Transmission Date: 20111010
  Serious: Yes (Death, Hospitalization, Other)
  Sender: FDA-Public Use
  Company Number: AUR-APL-2011-01567

PATIENT
  Age: 19 Year
  Sex: Female

DRUGS (5)
  1. DOMPERIDONE [Suspect]
     Indication: EAR INFECTION
  2. AMOXICILLIN [Suspect]
     Indication: EAR INFECTION
  3. SITAXENTAN [Suspect]
     Indication: PULMONARY ARTERIAL HYPERTENSION
     Dosage: 100 MG   DAILY,
  4. OMEPRAZOLE [Suspect]
     Indication: EAR INFECTION
  5. SILDENAFIL CITRATE [Suspect]
     Indication: PULMONARY ARTERIAL HYPERTENSION
     Dosage: 50 MG TID,

REACTIONS (7)
  - COAGULOPATHY [None]
  - BRAIN OEDEMA [None]
  - LIVER INJURY [None]
  - HEPATIC NECROSIS [None]
  - HEPATOTOXICITY [None]
  - EAR INFECTION [None]
  - ACUTE HEPATIC FAILURE [None]
